FAERS Safety Report 9757233 (Version 1)
Quarter: 2013Q4

REPORT INFORMATION
  Report Type: Report from Study
  Country: CO (occurrence: CO)
  Receive Date: 20131213
  Receipt Date: 20131213
  Transmission Date: 20140711
  Serious: Yes (Other)
  Sender: FDA-Public Use
  Company Number: CO-ABBVIE-13P-036-1179599-00

PATIENT
  Age: 38 Year
  Sex: Male
  Weight: 43 kg

DRUGS (1)
  1. HUMIRA [Suspect]
     Indication: COLITIS ULCERATIVE
     Route: 058
     Dates: start: 20131114

REACTIONS (2)
  - Diarrhoea haemorrhagic [Unknown]
  - Rash [Unknown]
